FAERS Safety Report 15703336 (Version 1)
Quarter: 2018Q4

REPORT INFORMATION
  Report Type: Spontaneous
  Country: CA (occurrence: CA)
  Receive Date: 20181210
  Receipt Date: 20181210
  Transmission Date: 20190205
  Serious: Yes (Other)
  Sender: FDA-Public Use
  Company Number: CA-ROCHE-2226719

PATIENT
  Age: 66 Year
  Sex: Female
  Weight: 80 kg

DRUGS (21)
  1. PLAQUENIL [Suspect]
     Active Substance: HYDROXYCHLOROQUINE SULFATE
     Indication: PRODUCT USED FOR UNKNOWN INDICATION
     Route: 065
  2. TYLENOL [Concomitant]
     Active Substance: ACETAMINOPHEN
     Route: 065
  3. INFLECTRA [Suspect]
     Active Substance: INFLIXIMAB-DYYB
     Indication: RHEUMATOID ARTHRITIS
     Dosage: 400 MG/Q 0, 2, 6
     Route: 042
  4. METHOTREXATE. [Suspect]
     Active Substance: METHOTREXATE
     Indication: INTERSTITIAL LUNG DISEASE
     Dosage: DISCONTINUED
     Route: 065
     Dates: start: 2016, end: 2017
  5. ARAVA [Suspect]
     Active Substance: LEFLUNOMIDE
     Indication: INTERSTITIAL LUNG DISEASE
     Route: 065
  6. LUMIGAN [Concomitant]
     Active Substance: BIMATOPROST
     Dosage: 0.01 %EYE DROPS QD; ONGOING
     Route: 047
  7. TRAZODONE [Concomitant]
     Active Substance: TRAZODONE HYDROCHLORIDE
     Dosage: ONGOING
     Route: 065
  8. VALSARTAN. [Concomitant]
     Active Substance: VALSARTAN
     Dosage: ONGOING
     Route: 065
  9. RITUXAN [Suspect]
     Active Substance: RITUXIMAB
     Dosage: ONGOING
     Route: 042
     Dates: start: 20180803
  10. LYRICA [Suspect]
     Active Substance: PREGABALIN
     Indication: PRODUCT USED FOR UNKNOWN INDICATION
     Dosage: ONGOING
     Route: 065
  11. XELJANZ [Suspect]
     Active Substance: TOFACITINIB CITRATE
     Indication: PRODUCT USED FOR UNKNOWN INDICATION
     Route: 065
     Dates: start: 2017, end: 2018
  12. SUPHEDRINE PE PRODUCT NOS [Concomitant]
     Dosage: ONGOING: YES
     Route: 065
  13. SIMPONI [Suspect]
     Active Substance: GOLIMUMAB
     Indication: PRODUCT USED FOR UNKNOWN INDICATION
     Route: 042
     Dates: start: 2016
  14. WELLBUTRIN XL [Concomitant]
     Active Substance: BUPROPION HYDROCHLORIDE
     Dosage: 300 MG QD; ONGOING
     Route: 065
  15. ESOMEPRAZOLE. [Concomitant]
     Active Substance: ESOMEPRAZOLE MAGNESIUM
     Dosage: ONGOING: YES
     Route: 065
  16. RITUXAN [Suspect]
     Active Substance: RITUXIMAB
     Indication: PRODUCT USED FOR UNKNOWN INDICATION
     Dosage: ONGOING
     Route: 042
     Dates: start: 20180720
  17. SULFASALAZINE. [Suspect]
     Active Substance: SULFASALAZINE
     Indication: PRODUCT USED FOR UNKNOWN INDICATION
     Dosage: ONGOING; YES
     Route: 065
  18. ORENCIA [Suspect]
     Active Substance: ABATACEPT
     Indication: INTERSTITIAL LUNG DISEASE
     Route: 065
     Dates: start: 201704, end: 201706
  19. TYLENOL [Concomitant]
     Active Substance: ACETAMINOPHEN
     Dosage: ONGOING; UP TO 3000 MG DAILY
     Route: 065
  20. VALSARTAN. [Concomitant]
     Active Substance: VALSARTAN
     Dosage: ONGOING
     Route: 065
  21. NEXIUM [Concomitant]
     Active Substance: ESOMEPRAZOLE MAGNESIUM
     Dosage: ONGOING
     Route: 065

REACTIONS (4)
  - Flushing [Unknown]
  - Drug ineffective [Unknown]
  - Interstitial lung disease [Unknown]
  - Abdominal discomfort [Unknown]
